FAERS Safety Report 12216061 (Version 2)
Quarter: 2016Q2

REPORT INFORMATION
  Report Type: Spontaneous
  Country: JP (occurrence: JP)
  Receive Date: 20160329
  Receipt Date: 20160407
  Transmission Date: 20160815
  Serious: Yes (Life-Threatening)
  Sender: FDA-Public Use
  Company Number: JP-ROCHE-1712326

PATIENT
  Age: 81 Year
  Sex: Female
  Weight: 50 kg

DRUGS (7)
  1. ALECENSA [Suspect]
     Active Substance: ALECTINIB HYDROCHLORIDE
     Indication: LUNG ADENOCARCINOMA
     Route: 048
     Dates: start: 20151216, end: 20160210
  2. CELECOX [Concomitant]
     Active Substance: CELECOXIB
     Indication: LUNG ADENOCARCINOMA
     Route: 048
     Dates: start: 20151215
  3. NOVAMIN (JAPAN) [Concomitant]
     Indication: LUNG ADENOCARCINOMA
     Route: 048
     Dates: start: 20151215, end: 20151227
  4. OXYCONTIN [Concomitant]
     Active Substance: OXYCODONE HYDROCHLORIDE
     Indication: LUNG ADENOCARCINOMA
     Route: 048
     Dates: start: 20151210
  5. LYRICA [Concomitant]
     Active Substance: PREGABALIN
     Indication: LUNG ADENOCARCINOMA
     Route: 048
     Dates: start: 20151210
  6. TAKEPRON [Concomitant]
     Active Substance: LANSOPRAZOLE
     Indication: LUNG ADENOCARCINOMA
     Route: 048
     Dates: start: 20151215
  7. CALONAL [Concomitant]
     Active Substance: ACETAMINOPHEN
     Route: 048
     Dates: start: 20151223

REACTIONS (2)
  - Respiratory failure [Unknown]
  - Lung disorder [Recovering/Resolving]

NARRATIVE: CASE EVENT DATE: 201602
